FAERS Safety Report 13568646 (Version 1)
Quarter: 2017Q2

REPORT INFORMATION
  Report Type: Spontaneous
  Country: CA (occurrence: CA)
  Receive Date: 20170522
  Receipt Date: 20170522
  Transmission Date: 20170830
  Serious: Yes (Hospitalization, Other)
  Sender: FDA-Public Use
  Company Number: CA-PFIZER INC-2017219709

PATIENT
  Sex: Female

DRUGS (2)
  1. ARTHROTEC [Suspect]
     Active Substance: DICLOFENAC SODIUM\MISOPROSTOL
     Dosage: 75 MG
  2. ARTHROTEC [Suspect]
     Active Substance: DICLOFENAC SODIUM\MISOPROSTOL
     Indication: OSTEOARTHRITIS
     Dosage: 50 MG
     Route: 048

REACTIONS (6)
  - Peripheral swelling [Recovered/Resolved]
  - Haematuria [Recovered/Resolved]
  - Pulmonary oedema [Recovered/Resolved]
  - Hepatosplenomegaly [Recovered/Resolved]
  - Myocardial oedema [Recovered/Resolved]
  - Melaena [Recovered/Resolved]
